FAERS Safety Report 17792521 (Version 2)
Quarter: 2020Q2

REPORT INFORMATION
  Report Type: Spontaneous
  Country: US (occurrence: US)
  Receive Date: 20200515
  Receipt Date: 20200522
  Transmission Date: 20200714
  Serious: Yes (Death)
  Sender: FDA-Public Use
  Company Number: US-PFIZER INC-2019513608

PATIENT
  Age: 89 Year
  Sex: Male

DRUGS (2)
  1. RETACRIT [Suspect]
     Active Substance: EPOETIN ALFA-EPBX
     Indication: CHRONIC MYELOMONOCYTIC LEUKAEMIA
     Dosage: 20000 IU, UNK (Q (EVERY) 14 DAYS)
  2. RETACRIT [Suspect]
     Active Substance: EPOETIN ALFA-EPBX
     Dosage: 10000 IU, WEEKLY (10,000 UNITS PER WEEK)

REACTIONS (2)
  - Off label use [Unknown]
  - Death [Fatal]
